FAERS Safety Report 21267030 (Version 1)
Quarter: 2022Q3

REPORT INFORMATION
  Report Type: Spontaneous
  Country: US (occurrence: None)
  Receive Date: 20220826
  Receipt Date: 20220826
  Transmission Date: 20221027
  Serious: No
  Sender: FDA-Public Use
  Company Number: None

PATIENT
  Age: 57 Year
  Sex: Female

DRUGS (1)
  1. COSENTYX [Suspect]
     Active Substance: SECUKINUMAB
     Indication: Ankylosing spondylitis
     Dosage: INJECT 150MG (1 PEN) SUBCUTANEOUSLY EVERY  WEEK FOR 5 WEEKS AS DIRECTED?
     Route: 058
     Dates: start: 202011

REACTIONS (2)
  - Infection [None]
  - Therapy interrupted [None]
